FAERS Safety Report 7920704-3 (Version None)
Quarter: 2011Q4

REPORT INFORMATION
  Report Type: 
  Country: None (occurrence: None)
  Receive Date: 20111117
  Receipt Date: 20111110
  Transmission Date: 20120403
  Serious: Yes (Hospitalization)
  Sender: FDA-Public Use
  Company Number: US-JNJFOC-20110205851

PATIENT
  Sex: Female
  Weight: 69.85 kg

DRUGS (2)
  1. USTEKINUMAB [Suspect]
     Indication: PSORIASIS
     Route: 058
     Dates: start: 20091101
  2. USTEKINUMAB [Suspect]
     Route: 058
     Dates: start: 20110210

REACTIONS (2)
  - BREAST CANCER [None]
  - FIBROCYSTIC BREAST DISEASE [None]
